FAERS Safety Report 13125193 (Version 1)
Quarter: 2017Q1

REPORT INFORMATION
  Report Type: Spontaneous
  Country: US (occurrence: US)
  Receive Date: 20170117
  Receipt Date: 20170117
  Transmission Date: 20170428
  Serious: Yes (Other)
  Sender: FDA-Public Use
  Company Number: None

PATIENT
  Age: 69 Year
  Sex: Female
  Weight: 81.9 kg

DRUGS (8)
  1. ANASTROZOLE. [Suspect]
     Active Substance: ANASTROZOLE
     Indication: BREAST CANCER
     Dosage: ?          QUANTITY:1 TABLET(S);?
     Route: 048
     Dates: start: 20150101, end: 20161210
  2. NIACIN. [Concomitant]
     Active Substance: NIACIN
  3. CALCIUM [Concomitant]
     Active Substance: CALCIUM
  4. METAMUCIL [Concomitant]
     Active Substance: PLANTAGO SEED
  5. VITAMIN D3 [Concomitant]
     Active Substance: CHOLECALCIFEROL
  6. ASPIRIN. [Concomitant]
     Active Substance: ASPIRIN
  7. VITAMIN C [Concomitant]
     Active Substance: ASCORBIC ACID
  8. PSYLLIUM FIBER KONSYL 1 TEASPOON [Concomitant]
     Active Substance: PSYLLIUM HUSK

REACTIONS (11)
  - Uveitis [None]
  - Ocular rosacea [None]
  - Nausea [None]
  - Drug interaction [None]
  - Acne [None]
  - Pain [None]
  - Confusional state [None]
  - Dizziness [None]
  - Insomnia [None]
  - Dyspnoea [None]
  - Depression [None]

NARRATIVE: CASE EVENT DATE: 20161210
